FAERS Safety Report 8317075-X (Version None)
Quarter: 2012Q2

REPORT INFORMATION
  Report Type: 
  Country: None (occurrence: None)
  Receive Date: 20120427
  Receipt Date: 20120420
  Transmission Date: 20120825
  Serious: Yes (Other)
  Sender: FDA-Public Use
  Company Number: US-BAYER-2012-006513

PATIENT
  Age: 36 Year
  Sex: Female
  Weight: 70.295 kg

DRUGS (7)
  1. OXYCODONE HCL [Concomitant]
     Dosage: 5/325 MG, 1 AS NEEDED.
  2. YAZ [Suspect]
     Dosage: UNK
     Dates: start: 20090623, end: 20100108
  3. TYLENOL (CAPLET) [Concomitant]
     Dosage: UNK UNK, PRN
  4. ANTIBIOTICS [Concomitant]
     Dosage: UNK
     Dates: start: 20010101
  5. ZYRTEC [Concomitant]
     Indication: MULTIPLE ALLERGIES
     Dosage: OVER THE COUNTER, AS NEEDED.
  6. IBUPROFEN (ADVIL) [Concomitant]
     Dosage: UNK UNK, PRN
  7. TOPAMAX [Concomitant]
     Indication: MIGRAINE
     Dosage: 50 MG, QD
     Dates: start: 20100101

REACTIONS (5)
  - WEIGHT INCREASED [None]
  - GALLBLADDER DISORDER [None]
  - INJURY [None]
  - DIARRHOEA [None]
  - CHOLECYSTITIS CHRONIC [None]
